FAERS Safety Report 6103613-4 (Version None)
Quarter: 2009Q1

REPORT INFORMATION
  Report Type: 
  Country: None (occurrence: None)
  Receive Date: 20090302
  Receipt Date: 20090223
  Transmission Date: 20090719
  Serious: Yes (Other)
  Sender: FDA-Public Use
  Company Number: 041674

PATIENT
  Age: 31 Year
  Sex: Female

DRUGS (1)
  1. CLARAVIS [Suspect]
     Dosage: 40 MG, QOD, ORAL; 80 MG, QOD, ORAL
     Route: 048
     Dates: start: 20081126, end: 20090101

REACTIONS (1)
  - ROAD TRAFFIC ACCIDENT [None]
